FAERS Safety Report 13163942 (Version 1)
Quarter: 2017Q1

REPORT INFORMATION
  Report Type: Spontaneous
  Country: US (occurrence: US)
  Receive Date: 20170130
  Receipt Date: 20170130
  Transmission Date: 20170428
  Serious: Yes (Hospitalization)
  Sender: FDA-Public Use
  Company Number: US-B.I. PHARMACEUTICALS,INC./RIDGEFIELD-2017-BI-004438

PATIENT
  Age: 67 Year
  Sex: Male

DRUGS (7)
  1. ATORVASTATIN [Concomitant]
     Active Substance: ATORVASTATIN
     Indication: BLOOD CHOLESTEROL INCREASED
     Dosage: ONCE DAILY;  FORM STRENGTH: 80MG; FORMULATION: TABLET
     Route: 048
     Dates: start: 1999
  2. METFORMIN [Concomitant]
     Active Substance: METFORMIN HYDROCHLORIDE
     Indication: DIABETES MELLITUS
     Dosage: TWICE DAILY;  FORM STRENGTH: 1000MG; FORMULATION: TABLET
     Route: 048
     Dates: start: 1999
  3. POTASSIUM CITRATE. [Concomitant]
     Active Substance: POTASSIUM CITRATE
     Indication: RENAL LITHIASIS PROPHYLAXIS
     Dosage: TWICE DAILY;  FORM STRENGTH: 15MEQ; FORMULATION: TABLET
     Route: 048
     Dates: start: 2015
  4. ALLOPURINOL. [Concomitant]
     Active Substance: ALLOPURINOL
     Indication: GOUT
     Dosage: ONCE DAILY;  FORM STRENGTH: 300MG; FORMULATION: TABLET
     Route: 048
  5. TRADJENTA [Suspect]
     Active Substance: LINAGLIPTIN
     Indication: TYPE 2 DIABETES MELLITUS
     Route: 048
     Dates: start: 2013
  6. PIOGLITAZONE. [Concomitant]
     Active Substance: PIOGLITAZONE
     Indication: DIABETES MELLITUS
     Dosage: ONCE DAILY;  FORM STRENGTH: 15MG; FORMULATION: TABLET
     Route: 048
  7. METOPROLOL XL [Concomitant]
     Active Substance: METOPROLOL SUCCINATE
     Indication: HYPERTENSION
     Dosage: ONCE DAILY;  FORM STRENGTH: 25MG; FORMULATION: TABLET
     Route: 048
     Dates: start: 1999

REACTIONS (2)
  - Nephrolithiasis [Not Recovered/Not Resolved]
  - Nephrolithiasis [Not Recovered/Not Resolved]

NARRATIVE: CASE EVENT DATE: 2014
